FAERS Safety Report 4643089-7 (Version None)
Quarter: 2005Q2

REPORT INFORMATION
  Report Type: 
  Country: None (occurrence: None)
  Receive Date: 20050422
  Receipt Date: 20050414
  Transmission Date: 20051028
  Serious: Yes (Hospitalization, Other)
  Sender: FDA-Public Use
  Company Number: US-MERCK-0504GBR00109

PATIENT
  Age: 57 Year
  Sex: Male

DRUGS (4)
  1. ZETIA [Suspect]
     Indication: HYPERCHOLESTEROLAEMIA
     Route: 048
  2. ATORVASTATIN CALCIUM [Concomitant]
     Route: 065
  3. PHENYTOIN [Concomitant]
     Route: 065
  4. PHENOBARBITAL [Concomitant]
     Route: 065

REACTIONS (1)
  - CONVULSION [None]
